FAERS Safety Report 19867596 (Version 1)
Quarter: 2021Q3

REPORT INFORMATION
  Report Type: Spontaneous
  Country: US (occurrence: US)
  Receive Date: 20210921
  Receipt Date: 20210921
  Transmission Date: 20211014
  Serious: Yes (Other)
  Sender: FDA-Public Use
  Company Number: None

PATIENT
  Sex: Female

DRUGS (2)
  1. BARACLUDE [Suspect]
     Active Substance: ENTECAVIR
     Indication: HEPATITIS VIRAL
     Dosage: ?          OTHER DOSE:1 TAB;?
     Route: 048
     Dates: start: 20190330
  2. BARACLUDE [Suspect]
     Active Substance: ENTECAVIR
     Indication: HEPATITIS B
     Dosage: ?          OTHER DOSE:1 TAB;?
     Route: 048
     Dates: start: 20190330

REACTIONS (4)
  - Product dose omission in error [None]
  - Neoplasm malignant [None]
  - Dizziness [None]
  - Memory impairment [None]
